FAERS Safety Report 9332027 (Version 1)
Quarter: 2013Q2

REPORT INFORMATION
  Report Type: Spontaneous
  Country: GB (occurrence: None)
  Receive Date: 20130603
  Receipt Date: 20130603
  Transmission Date: 20140414
  Serious: Yes (Disabling)
  Sender: FDA-Public Use
  Company Number: GER/UKI/13/0029742

PATIENT
  Age: 68 Year
  Sex: Female
  Weight: 100.1 kg

DRUGS (7)
  1. MONTELUKAST [Suspect]
     Indication: ASTHMA
     Route: 048
     Dates: start: 20130402, end: 20130501
  2. BENDROFLUMETHIAZIDE (BENDROFLUMETHIAZIDE) [Concomitant]
  3. CANDESARTAN (CANDESARTAN) [Concomitant]
  4. CHLORPHENIRAMINE (CHLORPHENAMINE) [Concomitant]
  5. CODEINE (CODEINE) [Concomitant]
  6. PARACETAMOL (PARACETAMOL) [Concomitant]
  7. SERTRALINE (SERTRALINE) [Concomitant]

REACTIONS (7)
  - Influenza like illness [None]
  - Fatigue [None]
  - Cough [None]
  - Headache [None]
  - Malaise [None]
  - Paraesthesia [None]
  - Wheezing [None]
